FAERS Safety Report 5804195-4 (Version None)
Quarter: 2008Q3

REPORT INFORMATION
  Report Type: 
  Country: None (occurrence: None)
  Receive Date: 20080709
  Receipt Date: 20080627
  Transmission Date: 20090109
  Serious: Yes (Congenital Anomaly)
  Sender: FDA-Public Use
  Company Number: NL-JNJFOC-20080701218

PATIENT

DRUGS (1)
  1. TOPIRAMATE [Suspect]
     Indication: DRUG EXPOSURE DURING PREGNANCY

REACTIONS (7)
  - ACCESSORY AURICLE [None]
  - CONGENITAL SPINAL FUSION [None]
  - FISTULA [None]
  - MICROPHTHALMOS [None]
  - PREAURICULAR CYST [None]
  - THYMUS DISORDER [None]
  - VENTRICULAR SEPTAL DEFECT [None]
